FAERS Safety Report 5930228-0 (Version None)
Quarter: 2008Q4

REPORT INFORMATION
  Report Type: 
  Country: None (occurrence: None)
  Receive Date: 20081024
  Receipt Date: 20081015
  Transmission Date: 20090506
  Serious: Yes (Other)
  Sender: FDA-Public Use
  Company Number: TW-PFIZER INC-2008087643

PATIENT
  Sex: Male

DRUGS (4)
  1. SUTENT [Suspect]
     Indication: ANGIOSARCOMA
     Route: 048
     Dates: start: 20080901
  2. SUTENT [Suspect]
     Route: 048
  3. MORPHINE [Concomitant]
     Route: 048
  4. ANALGESICS [Concomitant]
     Route: 048

REACTIONS (5)
  - CEREBROVASCULAR ACCIDENT [None]
  - CHILLS [None]
  - FATIGUE [None]
  - NAUSEA [None]
  - VOMITING [None]
